FAERS Safety Report 9543581 (Version 2)
Quarter: 2013Q3

REPORT INFORMATION
  Report Type: Spontaneous
  Country: US (occurrence: US)
  Receive Date: 20130923
  Receipt Date: 20130925
  Transmission Date: 20140515
  Serious: Yes (Disabling, Other)
  Sender: FDA-Public Use
  Company Number: US-PFIZER INC-2013272644

PATIENT
  Age: 61 Year
  Sex: Male
  Weight: 90.7 kg

DRUGS (7)
  1. LYRICA [Suspect]
     Indication: PAIN
     Dosage: 300 MG, 1X/DAY
     Route: 048
     Dates: start: 200605
  2. LYRICA [Suspect]
     Indication: PERIPHERAL NERVE INJURY
     Dosage: UNK, 1X/DAY
     Route: 048
  3. LYRICA [Suspect]
     Indication: SURGERY
     Dosage: UNK
  4. CYMBALTA [Suspect]
     Indication: PAIN
     Dosage: 40 MG, 1X/DAY
     Dates: start: 2007
  5. DIAZEPAM [Concomitant]
     Indication: SLEEP DISORDER
     Dosage: 10 MG, 1X/DAY
  6. MORPHINE [Concomitant]
     Indication: PAIN
     Dosage: UNK
  7. OXYCODONE [Concomitant]
     Indication: PAIN
     Dosage: UNK

REACTIONS (12)
  - Peripheral nerve injury [Unknown]
  - Arthritis [Unknown]
  - Pain [Unknown]
  - Loss of consciousness [Unknown]
  - Fall [Unknown]
  - Rotator cuff syndrome [Unknown]
  - Low density lipoprotein increased [Unknown]
  - Paraesthesia [Unknown]
  - Device electrical finding [Unknown]
  - Malaise [Unknown]
  - Fatigue [Unknown]
  - Somnolence [Unknown]
